FAERS Safety Report 12114993 (Version 1)
Quarter: 2016Q1

REPORT INFORMATION
  Report Type: Spontaneous
  Country: US (occurrence: None)
  Receive Date: 20160224
  Receipt Date: 20160224
  Transmission Date: 20160526
  Serious: Yes (Other)
  Sender: FDA-Public Use
  Company Number: None

PATIENT
  Age: 40 Year
  Sex: Female
  Weight: 86.18 kg

DRUGS (2)
  1. LAMOTRIGINE. [Suspect]
     Active Substance: LAMOTRIGINE
     Indication: BIPOLAR II DISORDER
     Route: 048
     Dates: start: 20151117, end: 20160223
  2. WOMEN^S DAILY VITAMIN [Concomitant]

REACTIONS (7)
  - Blister [None]
  - Arthralgia [None]
  - Pain [None]
  - Gingival disorder [None]
  - Alopecia [None]
  - Gingival bleeding [None]
  - Rash pustular [None]

NARRATIVE: CASE EVENT DATE: 20160223
